FAERS Safety Report 9352059 (Version 3)
Quarter: 2013Q3

REPORT INFORMATION
  Report Type: Spontaneous
  Country: US (occurrence: US)
  Receive Date: 20130617
  Receipt Date: 20130826
  Transmission Date: 20140515
  Serious: Yes (Death)
  Sender: FDA-Public Use
  Company Number: US-MERCK-1306USA005942

PATIENT
  Sex: Male

DRUGS (3)
  1. TEMODAR [Suspect]
     Indication: BRAIN NEOPLASM
     Dosage: 100MG/4 CAPSULES FOR 5 DAYS
     Route: 048
     Dates: start: 201302
  2. AVASTIN (ATORVASTATIN CALCIUM) [Concomitant]
  3. DEPAKOTE [Concomitant]

REACTIONS (2)
  - Oncologic complication [Fatal]
  - Epistaxis [Unknown]
